FAERS Safety Report 22175999 (Version 1)
Quarter: 2023Q2

REPORT INFORMATION
  Report Type: Spontaneous
  Country: US (occurrence: None)
  Receive Date: 20230404
  Receipt Date: 20230404
  Transmission Date: 20230722
  Serious: Yes (Life-Threatening, Hospitalization)
  Sender: FDA-Public Use
  Company Number: None

PATIENT
  Age: 61 Year
  Sex: Female
  Weight: 69.5 kg

DRUGS (15)
  1. DALFAMPRIDINE [Suspect]
     Active Substance: DALFAMPRIDINE
     Indication: Multiple sclerosis
     Dosage: FREQUENCY : TWICE A DAY;?
     Route: 048
     Dates: start: 20230320, end: 20230324
  2. IBUPROFEN [Concomitant]
     Active Substance: IBUPROFEN
     Dates: start: 20220722
  3. calcium-vitamin D3 400 units [Concomitant]
     Dates: start: 20211215
  4. AMLODIPINE [Concomitant]
     Active Substance: AMLODIPINE BESYLATE
     Dates: start: 20220302
  5. clobetasol topical 0.05% [Concomitant]
     Dates: start: 20211227
  6. FAMOTIDINE [Concomitant]
     Active Substance: FAMOTIDINE
     Dates: start: 20220228
  7. FLUOXETINE [Concomitant]
     Active Substance: FLUOXETINE HYDROCHLORIDE
     Dates: start: 20210430
  8. HYDROCHLOROTHIAZIDE [Concomitant]
     Active Substance: HYDROCHLOROTHIAZIDE
     Dates: start: 20211216
  9. HYDROXYZINE HYDROCHLORIDE [Concomitant]
     Active Substance: HYDROXYZINE HYDROCHLORIDE
     Dates: start: 20211230
  10. MIRTAZAPINE [Concomitant]
     Active Substance: MIRTAZAPINE
     Dates: start: 20211018
  11. OMEPRAZOLE [Concomitant]
     Active Substance: OMEPRAZOLE
     Dates: start: 20220302
  12. potassium chloride ER 20 mEq [Concomitant]
     Dates: start: 20220228
  13. SOLIFENACIN SUCCINATE [Concomitant]
     Active Substance: SOLIFENACIN SUCCINATE
     Dates: start: 20220302
  14. TIZANIDINE [Concomitant]
     Active Substance: TIZANIDINE
     Dates: start: 20211018
  15. VALSARTAN [Concomitant]
     Active Substance: VALSARTAN
     Dates: start: 20220302

REACTIONS (3)
  - Seizure [None]
  - Immunodeficiency [None]
  - Intracranial infection [None]

NARRATIVE: CASE EVENT DATE: 20230324
